FAERS Safety Report 8060300-3 (Version None)
Quarter: 2012Q1

REPORT INFORMATION
  Report Type: 
  Country: None (occurrence: None)
  Receive Date: 20120119
  Receipt Date: 20120119
  Transmission Date: 20120608
  Serious: Yes (Hospitalization)
  Sender: FDA-Public Use
  Company Number: None

PATIENT
  Age: 46 Year
  Sex: Female
  Weight: 94.6 kg

DRUGS (14)
  1. KLOR-CON [Concomitant]
  2. PROTONIX [Concomitant]
  3. PLAVIX [Concomitant]
  4. METFORMIN HYDROCHLORIDE [Concomitant]
  5. GLIPIZIDE [Concomitant]
  6. ASPIRIN [Concomitant]
  7. BENAZEPRIL HYDROCHLORIDE [Suspect]
     Indication: HYPERTENSION
     Dosage: 20 MG DAILY PO CHRONIC
     Route: 048
  8. LASIX [Concomitant]
  9. DIOVAN [Concomitant]
  10. NORVASC [Concomitant]
  11. LANTUS [Concomitant]
  12. IMDUR [Concomitant]
  13. LIPITOR [Concomitant]
  14. METOPROLOL TARTRATE [Concomitant]

REACTIONS (2)
  - CEREBROVASCULAR ACCIDENT [None]
  - ANGIOEDEMA [None]
